FAERS Safety Report 5171205-X (Version None)
Quarter: 2006Q4

REPORT INFORMATION
  Report Type: 
  Country: None (occurrence: None)
  Receive Date: 20061213
  Receipt Date: 20061130
  Transmission Date: 20070319
  Serious: Yes (Other)
  Sender: FDA-Public Use
  Company Number: US-JNJFOC-20061200416

PATIENT
  Sex: Female
  Weight: 52.16 kg

DRUGS (7)
  1. FENTANYL TRANSDERMAL SYSTEM [Suspect]
     Indication: BACK PAIN
     Route: 062
  2. EPINEPHRINE [Concomitant]
     Indication: LATEX ALLERGY
     Route: 030
  3. LIPITOR [Concomitant]
     Indication: BLOOD CHOLESTEROL INCREASED
     Route: 048
  4. LUNESTA [Concomitant]
     Indication: SLEEP DISORDER
     Route: 048
  5. MEGACE [Concomitant]
     Indication: STEROID THERAPY
     Route: 048
  6. COMBIVENT [Concomitant]
     Indication: ASTHMA
     Route: 055
  7. PREMARIN [Concomitant]
     Indication: HORMONE REPLACEMENT THERAPY

REACTIONS (4)
  - ASTHMA [None]
  - ERYTHEMA [None]
  - EXCORIATION [None]
  - PRURITUS [None]
